FAERS Safety Report 25415247 (Version 3)
Quarter: 2025Q4

REPORT INFORMATION
  Report Type: Report from Study
  Country: US (occurrence: US)
  Receive Date: 20250609
  Receipt Date: 20251016
  Transmission Date: 20260117
  Serious: Yes (Other)
  Sender: ALEXION PHARMACEUTICALS
  Company Number: US-ASTRAZENECA-202506USA004091US

PATIENT
  Age: 39 Year
  Sex: Female

DRUGS (2)
  1. STRENSIQ [Suspect]
     Active Substance: ASFOTASE ALFA
     Indication: Phosphorus metabolism disorder
     Dosage: 2 MILLIGRAM/KILOGRAM, TIW
     Route: 065
  2. STRENSIQ [Suspect]
     Active Substance: ASFOTASE ALFA
     Dosage: 2 MILLIGRAM/KILOGRAM, TIW
     Route: 065

REACTIONS (8)
  - Thrombotic thrombocytopenic purpura [Unknown]
  - Peripheral swelling [Unknown]
  - Livedo reticularis [Unknown]
  - Blood chloride increased [Unknown]
  - Protein total decreased [Unknown]
  - Weight increased [Unknown]
  - Joint swelling [Unknown]
  - Vitamin B6 decreased [Unknown]

NARRATIVE: CASE EVENT DATE: 20240101
